FAERS Safety Report 10775367 (Version 1)
Quarter: 2015Q1

REPORT INFORMATION
  Report Type: Spontaneous
  Country: TH (occurrence: None)
  Receive Date: 20150205
  Receipt Date: 20150205
  Transmission Date: 20150721
  Serious: Yes (Other)
  Sender: FDA-Public Use
  Company Number: BD-2015-0057

PATIENT

DRUGS (3)
  1. PROPOFOL (PROPOFOL) [Suspect]
     Active Substance: PROPOFOL
     Indication: SEDATION
  2. MIDAZOLAM [Suspect]
     Active Substance: MIDAZOLAM\MIDAZOLAM HYDROCHLORIDE
     Indication: SEDATION
  3. MEPERIDINE [Suspect]
     Active Substance: MEPERIDINE
     Indication: SEDATION

REACTIONS (1)
  - Pancreatitis [None]
